FAERS Safety Report 5265268-0 (Version None)
Quarter: 2007Q1

REPORT INFORMATION
  Report Type: 
  Country: None (occurrence: None)
  Receive Date: 20061213
  Receipt Date: 20060403
  Transmission Date: 20070707
  Serious: No
  Sender: FDA-Public Use
  Company Number: 2006UW06086

PATIENT
  Sex: Female

DRUGS (2)
  1. TAMOXIFEN CITRATE [Suspect]
     Indication: BREAST CANCER
     Dates: end: 20041101
  2. ARIMIDEX [Suspect]
     Indication: BREAST CANCER
     Dates: start: 20041101

REACTIONS (1)
  - CATARACT [None]
